FAERS Safety Report 9033167 (Version 1)
Quarter: 2013Q1

REPORT INFORMATION
  Report Type: Spontaneous
  Country: FR (occurrence: FR)
  Receive Date: 20130128
  Receipt Date: 20130128
  Transmission Date: 20140127
  Serious: Yes (Hospitalization, Other)
  Sender: FDA-Public Use
  Company Number: FR-PFIZER INC-2013031336

PATIENT
  Age: 25 Year
  Sex: Female

DRUGS (3)
  1. EFFEXOR LP [Suspect]
     Indication: DEPRESSION
     Dosage: 2 DF, DAILY
  2. SERESTA [Suspect]
     Indication: DEPRESSION
     Dosage: 1 DF, DAILY
  3. ZYPREXA [Suspect]
     Indication: DEPRESSION
     Dosage: 0.5 DF IN MORNING AND 1 DF IN EVENING

REACTIONS (7)
  - Pre-eclampsia [Unknown]
  - Gestational diabetes [Unknown]
  - Ascites [Unknown]
  - Weight increased [Unknown]
  - Oedema [Unknown]
  - Headache [Unknown]
  - Dyspnoea [Unknown]
